FAERS Safety Report 10233516 (Version 1)
Quarter: 2014Q2

REPORT INFORMATION
  Report Type: Spontaneous
  Country: US (occurrence: None)
  Receive Date: 20140611
  Receipt Date: 20140611
  Transmission Date: 20141212
  Serious: Yes (Hospitalization)
  Sender: FDA-Public Use
  Company Number: None

PATIENT
  Age: 89 Year
  Sex: Male
  Weight: 141.8 kg

DRUGS (2)
  1. SERTRALINE [Suspect]
     Indication: DEPRESSION
     Route: 048
     Dates: start: 20140227, end: 20140331
  2. TRAZODONE [Suspect]
     Indication: DEPRESSION
     Route: 048
     Dates: start: 20120213

REACTIONS (11)
  - Asthenia [None]
  - Confusional state [None]
  - Agitation [None]
  - Decreased appetite [None]
  - Fall [None]
  - Tremor [None]
  - Drug interaction [None]
  - Hyperhidrosis [None]
  - Tachycardia [None]
  - Serotonin syndrome [None]
  - Tachypnoea [None]
